FAERS Safety Report 4352254-8 (Version None)
Quarter: 2004Q2

REPORT INFORMATION
  Report Type: 
  Country: None (occurrence: None)
  Receive Date: 20040428
  Receipt Date: 20040417
  Transmission Date: 20050107
  Serious: Yes (Other)
  Sender: FDA-Public Use
  Company Number: BE-JNJFOC-20040304757

PATIENT
  Sex: Female

DRUGS (5)
  1. PREPULSID (CISAPRIDE) SUSPENSION [Suspect]
     Indication: GASTROOESOPHAGEAL REFLUX DISEASE
     Dosage: SEE IMAGE
     Dates: start: 20030527, end: 20030721
  2. PREPULSID (CISAPRIDE) SUSPENSION [Suspect]
     Indication: GASTROOESOPHAGEAL REFLUX DISEASE
     Dosage: SEE IMAGE
     Dates: start: 20030722, end: 20030830
  3. PREPULSID (CISAPRIDE) SUSPENSION [Suspect]
     Indication: GASTROOESOPHAGEAL REFLUX DISEASE
     Dosage: SEE IMAGE
     Dates: start: 20030901, end: 20031002
  4. PREPULSID (CISAPRIDE) SUSPENSION [Suspect]
     Indication: GASTROOESOPHAGEAL REFLUX DISEASE
     Dosage: SEE IMAGE
     Dates: start: 20031003, end: 20031130
  5. PREPULSID (CISAPRIDE) SUSPENSION [Suspect]
     Indication: GASTROOESOPHAGEAL REFLUX DISEASE
     Dosage: SEE IMAGE
     Dates: start: 20031201, end: 20040122

REACTIONS (1)
  - FUNDOPLICATION [None]
